FAERS Safety Report 19508440 (Version 1)
Quarter: 2021Q3

REPORT INFORMATION
  Report Type: Other
  Country: GB (occurrence: GB)
  Receive Date: 20210708
  Receipt Date: 20210708
  Transmission Date: 20211014
  Serious: Yes (Other)
  Sender: FDA-Public Use
  Company Number: GB-LUPIN PHARMACEUTICALS INC.-2021-11110

PATIENT
  Age: 24 Year
  Sex: Male
  Weight: 84 kg

DRUGS (8)
  1. BETNOVATE [Concomitant]
     Active Substance: BETAMETHASONE
     Indication: ILL-DEFINED DISORDER
     Dosage: UNK, BID, FOR ONE WEEK
     Route: 065
     Dates: start: 20210329, end: 20210426
  2. FEXOFENADINE [Concomitant]
     Active Substance: FEXOFENADINE HYDROCHLORIDE
     Indication: ILL-DEFINED DISORDER
     Dosage: UNK,TAKE ONE DAILY
     Route: 065
     Dates: start: 20210616
  3. PHENOXYMETHYLPENICILLIN [Concomitant]
     Active Substance: PENICILLIN V
     Indication: ILL-DEFINED DISORDER
     Dosage: UNK UNK, QID,TAKE TWO TABLETS
     Route: 065
     Dates: start: 20210513, end: 20210523
  4. CLOTRIMAZOLE. [Concomitant]
     Active Substance: CLOTRIMAZOLE
     Indication: ILL-DEFINED DISORDER
     Dosage: UNK,APPLY THINLY ONCE AT NIGHT TO AFFECTED AREAS OF
     Route: 065
     Dates: start: 20210513, end: 20210523
  5. HYDROCORTISONE. [Concomitant]
     Active Substance: HYDROCORTISONE
     Indication: ILL-DEFINED DISORDER
     Dosage: UNK, PRN,USE ON FACE IF NEEDED
     Route: 065
     Dates: start: 20210329, end: 20210426
  6. FEXOFENADINE [Concomitant]
     Active Substance: FEXOFENADINE HYDROCHLORIDE
     Indication: PRURITUS
  7. SERTRALINE [Suspect]
     Active Substance: SERTRALINE HYDROCHLORIDE
     Indication: PRODUCT USED FOR UNKNOWN INDICATION
     Dosage: 50 MILLIGRAM, QD, 350.0 MG
     Route: 065
     Dates: start: 20210616
  8. FLUCLOXACILLIN [Concomitant]
     Active Substance: FLUCLOXACILLIN
     Indication: ILL-DEFINED DISORDER
     Dosage: UNK, QID,TAKE ONE
     Route: 065
     Dates: start: 20210616, end: 20210623

REACTIONS (1)
  - Contusion [Unknown]

NARRATIVE: CASE EVENT DATE: 20210623
